FAERS Safety Report 13182493 (Version 7)
Quarter: 2018Q3

REPORT INFORMATION
  Report Type: Spontaneous
  Country: US (occurrence: US)
  Receive Date: 20170203
  Receipt Date: 20180803
  Transmission Date: 20181010
  Serious: No
  Sender: FDA-Public Use
  Company Number: US-PFIZER INC-2017042388

PATIENT
  Age: 56 Year
  Sex: Female

DRUGS (19)
  1. LAMICTAL [Concomitant]
     Active Substance: LAMOTRIGINE
     Indication: ATONIC SEIZURES
     Dosage: DAILY (INCREASED DOSE)
     Dates: start: 2014
  2. SKELAXIN [Suspect]
     Active Substance: METAXALONE
     Indication: SPINAL CORD COMPRESSION
  3. CLONAZEPAM. [Concomitant]
     Active Substance: CLONAZEPAM
     Indication: GENERALISED TONIC-CLONIC SEIZURE
     Dosage: UNK
     Dates: start: 2001
  4. SKELAXIN [Suspect]
     Active Substance: METAXALONE
     Indication: MUSCLE SPASMS
  5. CLONAZEPAM. [Concomitant]
     Active Substance: CLONAZEPAM
     Indication: SEIZURE
  6. SKELAXIN [Suspect]
     Active Substance: METAXALONE
     Indication: SPINAL CORD DISORDER
     Dosage: UNK
     Dates: start: 2012, end: 2014
  7. CLONAZEPAM. [Concomitant]
     Active Substance: CLONAZEPAM
     Indication: ATONIC SEIZURES
     Dosage: 2 MG, 2X/DAY (AM + PM)
     Dates: start: 2013
  8. SKELAXIN [Suspect]
     Active Substance: METAXALONE
     Indication: SPINAL COLUMN STENOSIS
     Dosage: 800 MG, 1X/DAY
     Route: 048
  9. LAMICTAL [Concomitant]
     Active Substance: LAMOTRIGINE
     Indication: GENERALISED TONIC-CLONIC SEIZURE
     Dosage: UNK
     Dates: start: 2010
  10. LAMICTAL [Concomitant]
     Active Substance: LAMOTRIGINE
     Indication: PARTIAL SEIZURES
     Dosage: 50 MG
  11. LAMICTAL [Concomitant]
     Active Substance: LAMOTRIGINE
     Indication: SEIZURE
     Dosage: 100 MG, 2X/DAY
     Dates: start: 201610
  12. TIZANIDINE. [Concomitant]
     Active Substance: TIZANIDINE
     Indication: MUSCLE RELAXANT THERAPY
     Dosage: 400 MG, UNK
  13. SKELAXIN [Suspect]
     Active Substance: METAXALONE
     Indication: PAIN IN EXTREMITY
     Dosage: 800 MG, 2X/DAY (1 CAPSULE 2X A DAY;8 HOURS APART)
     Route: 048
     Dates: start: 201610
  14. SKELAXIN [Suspect]
     Active Substance: METAXALONE
     Indication: MUSCULOSKELETAL PAIN
  15. TIZANIDINE. [Concomitant]
     Active Substance: TIZANIDINE
     Indication: SLEEP DISORDER
     Dosage: 8 MG, 1X/DAY(4 MG TWO TABLETS AT NIGHT, TAKEN AT NIGHT BEFORE BED)
     Dates: start: 2016
  16. TIZANIDINE. [Concomitant]
     Active Substance: TIZANIDINE
     Indication: MUSCLE SPASMS
  17. SKELAXIN [Suspect]
     Active Substance: METAXALONE
     Indication: PAIN
  18. CLONAZEPAM. [Concomitant]
     Active Substance: CLONAZEPAM
     Indication: PARTIAL SEIZURES
     Dosage: 2 MG, 3X/DAY(TAPERING TO 4 MG DAILY)
  19. SKELAXIN [Suspect]
     Active Substance: METAXALONE
     Indication: SPINAL DISORDER

REACTIONS (2)
  - Intentional product misuse [Unknown]
  - Muscle spasms [Unknown]

NARRATIVE: CASE EVENT DATE: 201706
